FAERS Safety Report 11068445 (Version 1)
Quarter: 2015Q2

REPORT INFORMATION
  Report Type: Spontaneous
  Country: SE (occurrence: SE)
  Receive Date: 20150427
  Receipt Date: 20150427
  Transmission Date: 20150821
  Serious: Yes (Other)
  Sender: FDA-Public Use
  Company Number: SE-ABBVIE-15P-150-1381572-00

PATIENT
  Age: 38 Year
  Sex: Female

DRUGS (4)
  1. ERGENYL [Suspect]
     Active Substance: VALPROIC ACID
     Indication: BIPOLAR DISORDER
     Route: 048
  2. LITHIONIT [Suspect]
     Active Substance: LITHIUM SULFATE
     Indication: BIPOLAR DISORDER
     Route: 048
  3. SERTRALINE [Suspect]
     Active Substance: SERTRALINE HYDROCHLORIDE
     Indication: BIPOLAR DISORDER
     Route: 048
  4. STESOLID [Concomitant]
     Active Substance: DIAZEPAM
     Indication: PRODUCT USED FOR UNKNOWN INDICATION

REACTIONS (3)
  - Peroneal nerve palsy [Not Recovered/Not Resolved]
  - Paresis [Not Recovered/Not Resolved]
  - Folate deficiency [Not Recovered/Not Resolved]

NARRATIVE: CASE EVENT DATE: 20150301
